FAERS Safety Report 7961815-6 (Version None)
Quarter: 2011Q4

REPORT INFORMATION
  Report Type: 
  Country: None (occurrence: None)
  Receive Date: 20111207
  Receipt Date: 20111207
  Transmission Date: 20120403
  Serious: No
  Sender: FDA-Public Use
  Company Number: None

PATIENT
  Age: 28 Year
  Sex: Female
  Weight: 58.967 kg

DRUGS (1)
  1. LEVONORGESTREL AND ETHINYL ESTRADIOL [Suspect]
     Indication: DYSMENORRHOEA
     Dosage: 1 PILL
     Route: 048
     Dates: start: 20111015, end: 20111206

REACTIONS (6)
  - DIZZINESS [None]
  - PRODUCT SUBSTITUTION ISSUE [None]
  - METRORRHAGIA [None]
  - ACNE [None]
  - ASTHENIA [None]
  - MUSCLE SPASMS [None]
